FAERS Safety Report 17374524 (Version 1)
Quarter: 2020Q1

REPORT INFORMATION
  Report Type: Spontaneous
  Country: US (occurrence: US)
  Receive Date: 20200204
  Receipt Date: 20200204
  Transmission Date: 20200409
  Serious: Yes (Hospitalization)
  Sender: FDA-Public Use
  Company Number: None

PATIENT
  Age: 62 Year
  Sex: Female

DRUGS (1)
  1. TALZENNA [Suspect]
     Active Substance: TALAZOPARIB TOSYLATE
     Indication: NEOPLASM MALIGNANT
     Route: 048

REACTIONS (2)
  - Therapy cessation [None]
  - Blood count abnormal [None]

NARRATIVE: CASE EVENT DATE: 20200203
